FAERS Safety Report 5236813-6 (Version None)
Quarter: 2007Q1

REPORT INFORMATION
  Report Type: 
  Country: None (occurrence: None)
  Receive Date: 20070213
  Receipt Date: 20070131
  Transmission Date: 20070707
  Serious: Yes (Hospitalization, Disabling)
  Sender: FDA-Public Use
  Company Number: PHHO2006JP21680

PATIENT
  Age: 41 Year
  Sex: Female
  Weight: 63 kg

DRUGS (7)
  1. DIOVAN [Suspect]
     Dosage: 80 MG, QD
     Route: 048
     Dates: start: 20021219
  2. WARFARIN SODIUM [Suspect]
     Indication: SYSTEMIC LUPUS ERYTHEMATOSUS
     Dosage: 4MG
     Route: 048
     Dates: start: 20021031
  3. WARFARIN SODIUM [Suspect]
     Dosage: 3MG
     Route: 048
     Dates: end: 20050801
  4. WARFARIN SODIUM [Suspect]
     Dosage: 2MG
     Route: 048
     Dates: start: 20051006
  5. NEORAL [Concomitant]
  6. PREDNISOLONE [Concomitant]
  7. GASTER D [Concomitant]

REACTIONS (2)
  - HEMIPLEGIA [None]
  - PUTAMEN HAEMORRHAGE [None]
